FAERS Safety Report 4527875-X (Version None)
Quarter: 2004Q4

REPORT INFORMATION
  Report Type: 
  Country: None (occurrence: None)
  Receive Date: 20041202
  Receipt Date: 20040908
  Transmission Date: 20050328
  Serious: No
  Sender: FDA-Public Use
  Company Number: 200420499BWH

PATIENT
  Age: 65 Year
  Sex: Male
  Weight: 99.7913 kg

DRUGS (10)
  1. LEVITRA [Suspect]
     Indication: ERECTILE DYSFUNCTION
     Dosage: 20 MG, PRN, ORAL
     Route: 048
  2. PHENTERMINE [Concomitant]
  3. CELEBREX [Concomitant]
  4. NEURONTIN [Concomitant]
  5. COZAAR [Concomitant]
  6. COREG [Concomitant]
  7. GLUCOVANCE [Concomitant]
  8. HYDROCHLOROTHIAZIDE [Concomitant]
  9. NITROSTAT [Concomitant]
  10. ASPIRIN [Concomitant]

REACTIONS (2)
  - ERECTILE DYSFUNCTION [None]
  - NASAL CONGESTION [None]
